FAERS Safety Report 25164047 (Version 1)
Quarter: 2025Q2

REPORT INFORMATION
  Report Type: Spontaneous
  Country: GB (occurrence: GB)
  Receive Date: 20250405
  Receipt Date: 20250405
  Transmission Date: 20250716
  Serious: Yes (Disabling, Other)
  Sender: AUROBINDO
  Company Number: GB-MHRA-INPAB19324B-4801-4FC2-92FD-CB84BDEB1FD3

PATIENT
  Age: 77 Year
  Sex: Female
  Weight: 84 kg

DRUGS (9)
  1. FLUOXETINE [Suspect]
     Active Substance: FLUOXETINE HYDROCHLORIDE
     Indication: Product used for unknown indication
     Route: 048
     Dates: start: 20220612
  2. DIAZEPAM [Concomitant]
     Active Substance: DIAZEPAM
     Indication: Product used for unknown indication
     Route: 065
     Dates: start: 20220527
  3. DIAZEPAM [Concomitant]
     Active Substance: DIAZEPAM
     Dosage: UNK UNK, TWO TIMES A DAY
     Route: 065
     Dates: start: 20220704
  4. EXEMESTANE [Concomitant]
     Active Substance: EXEMESTANE
     Indication: Product used for unknown indication
     Dosage: UNK (1 TABLET ONCE DAILY)
     Route: 065
     Dates: start: 20220624
  5. LEVOTHYROXINE [Concomitant]
     Active Substance: LEVOTHYROXINE
     Indication: Product used for unknown indication
     Dosage: UNK (1 TABLET ONCE A DAY)
     Route: 065
     Dates: start: 20220525, end: 20220607
  6. LEVOTHYROXINE [Concomitant]
     Active Substance: LEVOTHYROXINE
     Route: 065
     Dates: start: 20220525
  7. LEVOTHYROXINE [Concomitant]
     Active Substance: LEVOTHYROXINE
     Route: 065
     Dates: start: 20220607
  8. PROMETHAZINE HYDROCHLORIDE [Concomitant]
     Active Substance: PROMETHAZINE HYDROCHLORIDE
     Indication: Product used for unknown indication
     Dosage: AT NIGHT
     Route: 065
     Dates: start: 20220527
  9. ROSUVASTATIN [Concomitant]
     Active Substance: ROSUVASTATIN
     Indication: Product used for unknown indication
     Dosage: UNK (1 TABLET DAILY)
     Route: 065
     Dates: start: 20220425

REACTIONS (1)
  - Suicidal ideation [Recovered/Resolved]

NARRATIVE: CASE EVENT DATE: 20220612
